FAERS Safety Report 4289317-1 (Version None)
Quarter: 2004Q1

REPORT INFORMATION
  Report Type: 
  Country: None (occurrence: None)
  Receive Date: 20040206
  Receipt Date: 20040126
  Transmission Date: 20041129
  Serious: Yes (Hospitalization, Other)
  Sender: FDA-Public Use
  Company Number: 2004194532DE

PATIENT
  Age: 79 Year
  Sex: Female
  Weight: 89 kg

DRUGS (5)
  1. AROMASIN [Suspect]
     Indication: BREAST CANCER
     Dosage: 25 MG, QD, ORAL
     Route: 048
  2. THIOCTACID [Concomitant]
  3. APROVEL (IRBESARTAN) [Concomitant]
  4. ACTRAPID MC (INSULIN) [Concomitant]
  5. PROTAPHAN (INSULIN ISOPHANE, HUMAN BIOSYNTHETIC) [Concomitant]

REACTIONS (6)
  - ABDOMINAL DISCOMFORT [None]
  - BLOOD PRESSURE SYSTOLIC INCREASED [None]
  - CHOLESTASIS [None]
  - HEPATOCELLULAR DAMAGE [None]
  - JAUNDICE [None]
  - PRURITUS [None]
